FAERS Safety Report 14544692 (Version 1)
Quarter: 2018Q1

REPORT INFORMATION
  Report Type: Spontaneous
  Country: US (occurrence: US)
  Receive Date: 20180217
  Receipt Date: 20180217
  Transmission Date: 20180509
  Serious: Yes (Hospitalization, Other)
  Sender: FDA-Public Use
  Company Number: US-AMGEN-USASP2018020233

PATIENT
  Age: 68 Year
  Sex: Female

DRUGS (17)
  1. NORCO [Concomitant]
     Active Substance: ACETAMINOPHEN\HYDROCODONE BITARTRATE
     Dosage: 10-325 MG
  2. SYNTHROID [Concomitant]
     Active Substance: LEVOTHYROXINE SODIUM
     Dosage: 50 MUG, UNK
  3. CYMBALTA [Concomitant]
     Active Substance: DULOXETINE HYDROCHLORIDE
     Dosage: 60 MG, BID
  4. LASIX [Concomitant]
     Active Substance: FUROSEMIDE
     Dosage: 20 MG, UNK
  5. NEURONTIN [Concomitant]
     Active Substance: GABAPENTIN
     Dosage: 300 MG, UNK
  6. PROCRIT [Suspect]
     Active Substance: ERYTHROPOIETIN
     Indication: PRODUCT USED FOR UNKNOWN INDICATION
     Dosage: 20,000 UNIT/ML, UNK
     Route: 065
  7. COREG [Concomitant]
     Active Substance: CARVEDILOL
     Dosage: 6.25 MG, UNK
  8. XARELTO [Concomitant]
     Active Substance: RIVAROXABAN
     Dosage: UNK
  9. VITAMIN D3 [Concomitant]
     Active Substance: CHOLECALCIFEROL
     Dosage: 5000 UNIT, DAILY
  10. ATARAX [Concomitant]
     Active Substance: HYDROXYZINE HYDROCHLORIDE
     Dosage: 25 MG, UNK
  11. LEVOTHROID [Concomitant]
     Active Substance: LEVOTHYROXINE SODIUM
     Dosage: 50 MUG, UNK
  12. MORPHINE [Concomitant]
     Active Substance: MORPHINE
     Dosage: 15 MG, UNK
     Route: 048
  13. ULORIC [Concomitant]
     Active Substance: FEBUXOSTAT
     Indication: GOUT
     Dosage: UNK
  14. CYMBALTA [Concomitant]
     Active Substance: DULOXETINE HYDROCHLORIDE
     Dosage: 30 MG, UNK
  15. PREDNISONE. [Concomitant]
     Active Substance: PREDNISONE
     Dosage: 10 MG, DAILY
  16. ZESTRIL [Concomitant]
     Active Substance: LISINOPRIL
     Dosage: 5 MG, UNK
  17. MORPHINE [Concomitant]
     Active Substance: MORPHINE
     Dosage: 30 MG, QD (ONCE EVERY EVENING)
     Route: 048

REACTIONS (15)
  - Upper limb fracture [Unknown]
  - Hip fracture [Unknown]
  - Tremor [Unknown]
  - Hospitalisation [Unknown]
  - Hyperparathyroidism secondary [Unknown]
  - Dyspnoea exertional [Unknown]
  - Arthritis [Not Recovered/Not Resolved]
  - Hypotension [Unknown]
  - Insomnia [Unknown]
  - Weight decreased [Unknown]
  - Fall [Unknown]
  - Oedema peripheral [Not Recovered/Not Resolved]
  - Hypokalaemia [Unknown]
  - Fibromyalgia [Not Recovered/Not Resolved]
  - Dizziness postural [Unknown]

NARRATIVE: CASE EVENT DATE: 201606
